FAERS Safety Report 5815399-9 (Version None)
Quarter: 2008Q3

REPORT INFORMATION
  Report Type: 
  Country: None (occurrence: None)
  Receive Date: 20080718
  Receipt Date: 20080708
  Transmission Date: 20090109
  Serious: Yes (Hospitalization, Other)
  Sender: FDA-Public Use
  Company Number: DK-PFIZER INC-2008056376

PATIENT
  Age: 42 Year
  Sex: Female
  Weight: 43 kg

DRUGS (8)
  1. VFEND [Suspect]
     Indication: ASPERGILLOSIS
     Route: 042
     Dates: start: 20080508, end: 20080708
  2. PRIMPERAN TAB [Concomitant]
     Route: 048
  3. PREDNISOLONE [Concomitant]
     Route: 048
  4. DICILLIN [Concomitant]
     Route: 048
     Dates: start: 20070905
  5. FUCIDINE CAP [Concomitant]
     Route: 048
  6. VOLTAREN [Concomitant]
     Route: 048
  7. PINEX [Concomitant]
     Route: 048
  8. POSACONAZOLE [Concomitant]
     Route: 048

REACTIONS (1)
  - HEPATOMEGALY [None]
